FAERS Safety Report 17893574 (Version 1)
Quarter: 2020Q2

REPORT INFORMATION
  Report Type: Spontaneous
  Country: FR (occurrence: FR)
  Receive Date: 20200615
  Receipt Date: 20200615
  Transmission Date: 20200714
  Serious: Yes (Life-Threatening)
  Sender: FDA-Public Use
  Company Number: FR-CADILA HEALTHCARE LIMITED-FR-ZYDUS-023325

PATIENT

DRUGS (14)
  1. DIPROSONE [Concomitant]
     Active Substance: BETAMETHASONE DIPROPIONATE
     Dosage: UNK
  2. XYLOCAINE VISCOUS [Concomitant]
     Active Substance: LIDOCAINE HYDROCHLORIDE
     Route: 048
  3. VALSARTAN. [Suspect]
     Active Substance: VALSARTAN
     Indication: HYPERTENSION
     Dosage: 40 MILLIGRAM,40 MG, QD,(INTERVAL :1 DAYS)
     Route: 048
     Dates: end: 201801
  4. TRAMADOL. [Suspect]
     Active Substance: TRAMADOL
     Indication: PAIN
     Dosage: 40 MILLIGRAM,40 MG, QD,(INTERVAL :1 DAYS)
     Route: 048
     Dates: end: 201801
  5. TRAMADOL. [Suspect]
     Active Substance: TRAMADOL
     Indication: PAIN
     Route: 048
     Dates: end: 201801
  6. OMEPRAZOLE. [Concomitant]
     Active Substance: OMEPRAZOLE
     Indication: HYPERTENSION
     Route: 048
  7. AERIUS (DESLORATADINE) [Suspect]
     Active Substance: DESLORATADINE
     Indication: PRODUCT USED FOR UNKNOWN INDICATION
     Dosage: 1 DOSAGE FORM,1 DF, QD,,(INTERVAL :1 DAYS)
     Route: 048
     Dates: end: 201801
  8. TRAMADOL. [Suspect]
     Active Substance: TRAMADOL
     Indication: HYPERTENSION
     Dosage: 1500 MILLIGRAM,1500 MG, QD,(INTERVAL :1 DAYS)
     Route: 048
     Dates: start: 20171221, end: 20180117
  9. BISOPROLOL [Concomitant]
     Active Substance: BISOPROLOL
     Indication: HYPERTENSION
     Dosage: UNK
     Route: 048
  10. PREVISCAN [Concomitant]
  11. TRAMADOL. [Suspect]
     Active Substance: TRAMADOL
     Indication: PAIN
     Dosage: UNK
     Route: 048
     Dates: end: 20180101
  12. FUROSEMIDE. [Suspect]
     Active Substance: FUROSEMIDE
     Indication: HYPERTENSION
     Dosage: 1500 MILLIGRAM,(INTERVAL :1 DAYS)
     Route: 048
     Dates: start: 20171221, end: 20180117
  13. ATARAX [Suspect]
     Active Substance: HYDROXYZINE HYDROCHLORIDE
     Indication: DEPRESSION
     Dosage: 1 DOSAGE FORM,1 DF, QD,(INTERVAL :1 DAYS)
     Route: 048
     Dates: end: 201801
  14. BISOPROLOL [Suspect]
     Active Substance: BISOPROLOL
     Indication: HYPERTENSION
     Dosage: 1500 MILLIGRAM,1500 MG, UNK
     Route: 048

REACTIONS (4)
  - Dehydration [Recovered/Resolved]
  - Weight decreased [Recovering/Resolving]
  - Hypokalaemia [Recovered/Resolved]
  - Acute kidney injury [Recovering/Resolving]

NARRATIVE: CASE EVENT DATE: 201801
